FAERS Safety Report 24897624 (Version 3)
Quarter: 2025Q1

REPORT INFORMATION
  Report Type: Report from Study
  Country: CA (occurrence: CA)
  Receive Date: 20250129
  Receipt Date: 20250205
  Transmission Date: 20250408
  Serious: No
  Sender: ROCHE
  Company Number: CA-ROCHE-10000187157

PATIENT
  Sex: Female

DRUGS (5)
  1. OCREVUS [Suspect]
     Active Substance: OCRELIZUMAB
     Indication: Relapsing-remitting multiple sclerosis
     Dosage: MORE DOSAGE INFORMATION IS 300 MG AT DAY 0 AND 14, THEN 600 MG EVERY 6 MONTH.
     Route: 040
     Dates: start: 20210329
  2. AZITHROMYCIN [Concomitant]
     Active Substance: AZITHROMYCIN
  3. CANDESARTAN [Concomitant]
     Active Substance: CANDESARTAN
  4. LABETALOL HYDROCHLORIDE [Concomitant]
     Active Substance: LABETALOL HYDROCHLORIDE
  5. TYLENOL [Concomitant]
     Active Substance: ACETAMINOPHEN

REACTIONS (6)
  - Influenza [Recovering/Resolving]
  - Nasopharyngitis [Recovered/Resolved]
  - Hand fracture [Not Recovered/Not Resolved]
  - Fall [Unknown]
  - Arthropod bite [Recovered/Resolved]
  - Inflammation [Unknown]
